FAERS Safety Report 10131893 (Version 2)
Quarter: 2014Q2

REPORT INFORMATION
  Report Type: Spontaneous
  Country: CN (occurrence: CN)
  Receive Date: 20140428
  Receipt Date: 20140517
  Transmission Date: 20141212
  Serious: Yes (Other)
  Sender: FDA-Public Use
  Company Number: CN-JNJFOC-20140410208

PATIENT
  Age: 36 Year
  Sex: Male
  Weight: 65 kg

DRUGS (1)
  1. TYLENOL [Suspect]
     Indication: NASOPHARYNGITIS
     Route: 048
     Dates: start: 20130105, end: 20130106

REACTIONS (1)
  - Jaundice [Recovering/Resolving]
